FAERS Safety Report 9393436 (Version 3)
Quarter: 2017Q4

REPORT INFORMATION
  Report Type: Report from Study
  Country: US (occurrence: US)
  Receive Date: 20130710
  Receipt Date: 20171010
  Transmission Date: 20180321
  Serious: Yes (Life-Threatening, Other)
  Sender: FDA-Public Use
  Company Number: US-CELGENEUS-163-21880-13070399

PATIENT

DRUGS (6)
  1. REVLIMID [Suspect]
     Active Substance: LENALIDOMIDE
     Dosage: 25 MILLIGRAM
     Route: 048
  2. ASPIRIN. [Concomitant]
     Active Substance: ASPIRIN
     Indication: PROPHYLAXIS
     Route: 065
  3. HEPARIN [Concomitant]
     Active Substance: HEPARIN SODIUM
     Indication: PROPHYLAXIS
     Route: 065
  4. REVLIMID [Suspect]
     Active Substance: LENALIDOMIDE
     Indication: B-CELL LYMPHOMA
     Dosage: 20 MILLIGRAM
     Route: 048
  5. RITUXIMAB. [Suspect]
     Active Substance: RITUXIMAB
     Indication: B-CELL LYMPHOMA
     Dosage: 375 MILLIGRAM/SQ. METER
     Route: 041
  6. RITUXIMAB. [Suspect]
     Active Substance: RITUXIMAB
     Dosage: 375 MILLIGRAM/SQ. METER
     Route: 041

REACTIONS (36)
  - Hyperglycaemia [Unknown]
  - Febrile neutropenia [Unknown]
  - Embolism [Unknown]
  - Neutropenia [Unknown]
  - Tumour lysis syndrome [Unknown]
  - Arthralgia [Unknown]
  - Respiratory disorder [Unknown]
  - Lymphopenia [Unknown]
  - Thrombocytopenia [Unknown]
  - Rash [Unknown]
  - Decreased appetite [Unknown]
  - Anaemia [Unknown]
  - B-cell lymphoma [Unknown]
  - Leukopenia [Unknown]
  - Aspartate aminotransferase increased [Unknown]
  - Therapy non-responder [Unknown]
  - Fatigue [Unknown]
  - Myalgia [Unknown]
  - Infection [Unknown]
  - Blood bilirubin increased [Unknown]
  - Peripheral sensory neuropathy [Unknown]
  - Pain [Unknown]
  - Nausea [Unknown]
  - Hypophosphataemia [Unknown]
  - Infusion related reaction [Unknown]
  - Pruritus [Unknown]
  - Dry skin [Unknown]
  - Blood alkaline phosphatase increased [Unknown]
  - Serum sickness [Unknown]
  - Constipation [Unknown]
  - Alanine aminotransferase increased [Unknown]
  - Stomatitis [Unknown]
  - Diarrhoea [Unknown]
  - Hypocalcaemia [Unknown]
  - Headache [Unknown]
  - Rash maculo-papular [Unknown]
